FAERS Safety Report 23419048 (Version 1)
Quarter: 2024Q1

REPORT INFORMATION
  Report Type: Spontaneous
  Country: JP (occurrence: JP)
  Receive Date: 20240118
  Receipt Date: 20240118
  Transmission Date: 20240410
  Serious: Yes (Hospitalization)
  Sender: FDA-Public Use
  Company Number: JP-ELI_LILLY_AND_COMPANY-JP202312004939

PATIENT
  Age: 71 Year
  Sex: Female

DRUGS (2)
  1. RETEVMO [Suspect]
     Active Substance: SELPERCATINIB
     Indication: Thyroid cancer
     Dosage: 240 MG, UNKNOWN
     Route: 048
     Dates: start: 20231110
  2. RETEVMO [Suspect]
     Active Substance: SELPERCATINIB
     Dosage: 160 MG, UNKNOWN
     Route: 048

REACTIONS (2)
  - Liver function test increased [Recovered/Resolved]
  - Electrocardiogram QT prolonged [Recovered/Resolved]
